FAERS Safety Report 6164442-9 (Version None)
Quarter: 2009Q2

REPORT INFORMATION
  Report Type: 
  Country: None (occurrence: None)
  Receive Date: 20090421
  Receipt Date: 20090408
  Transmission Date: 20091009
  Serious: Yes (Death, Hospitalization)
  Sender: FDA-Public Use
  Company Number: 2009AL002041

PATIENT
  Age: 65 Year
  Sex: Female
  Weight: 72.5755 kg

DRUGS (26)
  1. DIGOXIN [Suspect]
     Dosage: 0.125MG, DAILY, PO
     Route: 048
  2. INSULIN [Concomitant]
  3. CLONAZEPAM [Concomitant]
  4. HYDRALAZINE HCL [Concomitant]
  5. ISOSORBIDE DINITRATE [Concomitant]
  6. METOPROLOL [Concomitant]
  7. TEMAZEPAM [Concomitant]
  8. COLACE [Concomitant]
  9. ZOCOR [Concomitant]
  10. SINGULAIR [Concomitant]
  11. ATACAND [Concomitant]
  12. LASIX [Concomitant]
  13. ALBUTEROL [Concomitant]
  14. ATROVENT [Concomitant]
  15. PROTONIX [Concomitant]
  16. COREG [Concomitant]
  17. ASPIRIN [Concomitant]
  18. IMDUR [Concomitant]
  19. PLAVIX [Concomitant]
  20. PREDNISONE TAB [Concomitant]
  21. REQUIP [Concomitant]
  22. APRESOLINE [Concomitant]
  23. SPIRIVA [Concomitant]
  24. ADAVIR [Concomitant]
  25. VICODIN [Concomitant]
  26. LIDOCAINE [Concomitant]

REACTIONS (11)
  - ARTERIOSCLEROSIS [None]
  - ATRIAL FIBRILLATION [None]
  - BLEPHARITIS [None]
  - CARDIAC FAILURE CONGESTIVE [None]
  - DYSPHONIA [None]
  - EYE INFECTION [None]
  - RENAL FAILURE ACUTE [None]
  - SPINAL COMPRESSION FRACTURE [None]
  - SPUTUM CULTURE POSITIVE [None]
  - STAPHYLOCOCCAL INFECTION [None]
  - UPPER RESPIRATORY TRACT INFECTION [None]
